FAERS Safety Report 6066606-1 (Version None)
Quarter: 2009Q1

REPORT INFORMATION
  Report Type: 
  Country: None (occurrence: None)
  Receive Date: 20090205
  Receipt Date: 20090128
  Transmission Date: 20090719
  Serious: Yes (Hospitalization)
  Sender: FDA-Public Use
  Company Number: B0556400A

PATIENT
  Age: 76 Year
  Sex: Male

DRUGS (9)
  1. AUGMENTIN '125' [Suspect]
     Dosage: 3G PER DAY
     Route: 048
     Dates: start: 20081230
  2. ATACAND [Concomitant]
  3. KARDEGIC [Concomitant]
  4. LASILIX [Concomitant]
  5. KREDEX [Concomitant]
  6. PLAVIX [Concomitant]
  7. TAHOR [Concomitant]
  8. LANTUS [Concomitant]
  9. PREVISCAN [Concomitant]

REACTIONS (2)
  - AGITATION [None]
  - CONFUSIONAL STATE [None]
